FAERS Safety Report 8345028-4 (Version None)
Quarter: 2012Q2

REPORT INFORMATION
  Report Type: 
  Country: None (occurrence: None)
  Receive Date: 20120508
  Receipt Date: 20120427
  Transmission Date: 20120825
  Serious: Yes (Other)
  Sender: FDA-Public Use
  Company Number: US-ACTELION-A-NJ2012-63319

PATIENT

DRUGS (1)
  1. TRACLEER [Suspect]
     Indication: PULMONARY ARTERIAL HYPERTENSION
     Dosage: UNK
     Route: 048
     Dates: start: 20120228

REACTIONS (6)
  - HEADACHE [None]
  - NUTRITIONAL SUPPORT [None]
  - SLEEP DISORDER [None]
  - MECHANICAL VENTILATION [None]
  - FLUSHING [None]
  - RESPIRATORY RATE INCREASED [None]
